FAERS Safety Report 10553996 (Version 1)
Quarter: 2014Q4

REPORT INFORMATION
  Report Type: Spontaneous
  Country: US (occurrence: None)
  Receive Date: 20141029
  Receipt Date: 20141029
  Transmission Date: 20150529
  Serious: No
  Sender: FDA-Public Use
  Company Number: None

PATIENT
  Age: 50 Year
  Sex: Male
  Weight: 103.6 kg

DRUGS (2)
  1. RIVAROXABAN [Suspect]
     Active Substance: RIVAROXABAN
     Indication: SURGERY
     Dosage: 10 MG PM PO
     Route: 048
     Dates: start: 20140429, end: 20140504
  2. ACETAMINOPHEN. [Suspect]
     Active Substance: ACETAMINOPHEN
     Indication: SURGERY
     Dosage: 650 MG PRN PO
     Route: 048
     Dates: start: 20140428, end: 20140505

REACTIONS (1)
  - Anaemia [None]

NARRATIVE: CASE EVENT DATE: 20140504
